FAERS Safety Report 8603879-2 (Version None)
Quarter: 2012Q3

REPORT INFORMATION
  Report Type: 
  Country: None (occurrence: None)
  Receive Date: 20120806
  Receipt Date: 20120725
  Transmission Date: 20120928
  Serious: Yes (Other)
  Sender: FDA-Public Use
  Company Number: 2012MA009215

PATIENT
  Age: 15 Year
  Sex: Female

DRUGS (2)
  1. TEMAZEPAM [Concomitant]
  2. FEVERALL [Suspect]
     Indication: PRODUCT USED FOR UNKNOWN INDICATION
     Dosage: 40 GM, UNK

REACTIONS (4)
  - TOXICITY TO VARIOUS AGENTS [None]
  - ASPARTATE AMINOTRANSFERASE INCREASED [None]
  - PROTHROMBIN TIME PROLONGED [None]
  - LACTIC ACIDOSIS [None]
